FAERS Safety Report 7527530-8 (Version None)
Quarter: 2011Q2

REPORT INFORMATION
  Report Type: 
  Country: None (occurrence: None)
  Receive Date: 20110607
  Receipt Date: 20110512
  Transmission Date: 20111010
  Serious: No
  Sender: FDA-Public Use
  Company Number: US-JNJFOC-20110505745

PATIENT
  Sex: Male
  Weight: 90.72 kg

DRUGS (6)
  1. SEROQUEL [Concomitant]
     Route: 048
  2. AMLODIPINE BESYLATE [Concomitant]
     Route: 048
  3. INVEGA SUSTENNA [Suspect]
     Indication: SCHIZOPHRENIA
     Route: 030
     Dates: start: 20101012
  4. LOVASTATIN [Concomitant]
     Route: 048
  5. DEPAKOTE [Concomitant]
     Route: 048
  6. COGENTIN [Concomitant]
     Route: 048

REACTIONS (1)
  - INJECTION SITE SCAB [None]
